FAERS Safety Report 5955354-1 (Version None)
Quarter: 2008Q4

REPORT INFORMATION
  Report Type: 
  Country: None (occurrence: None)
  Receive Date: 20081031
  Receipt Date: 20080715
  Transmission Date: 20090506
  Serious: No
  Sender: FDA-Public Use
  Company Number: 2008PV036175

PATIENT
  Age: 79 Year
  Sex: Female

DRUGS (6)
  1. SYMLIN [Suspect]
     Indication: TYPE 2 DIABETES MELLITUS
     Dosage: 60 MCG; BID; SC, 120 MCG; BID; SC
     Route: 058
     Dates: start: 20080712, end: 20080713
  2. SYMLIN [Suspect]
     Indication: TYPE 2 DIABETES MELLITUS
     Dosage: 60 MCG; BID; SC, 120 MCG; BID; SC
     Route: 058
     Dates: start: 20080714
  3. SYMLIN [Suspect]
     Indication: TYPE 2 DIABETES MELLITUS
     Dosage: 60 MCG; BID; SC, SC, 15 MCG; BID; SC
     Route: 058
     Dates: start: 20080101, end: 20080101
  4. SYMLIN [Suspect]
     Indication: TYPE 2 DIABETES MELLITUS
     Dosage: 60 MCG; BID; SC, SC, 15 MCG; BID; SC
     Route: 058
     Dates: start: 20080501, end: 20080101
  5. SYMLIN [Suspect]
     Indication: TYPE 2 DIABETES MELLITUS
     Dosage: 60 MCG; BID; SC, SC, 15 MCG; BID; SC
     Route: 058
     Dates: start: 20080101, end: 20080711
  6. HUMALOG MIX 75/25 [Concomitant]

REACTIONS (1)
  - NAUSEA [None]
